FAERS Safety Report 10602900 (Version 3)
Quarter: 2015Q2

REPORT INFORMATION
  Report Type: Report from Study
  Country: DE (occurrence: DE)
  Receive Date: 20141124
  Receipt Date: 20150611
  Transmission Date: 20150821
  Serious: Yes (Hospitalization)
  Sender: FDA-Public Use
  Company Number: DE-009507513-1403DEU009445

PATIENT
  Age: 62 Year
  Sex: Male

DRUGS (6)
  1. KALETRA [Suspect]
     Active Substance: LOPINAVIR\RITONAVIR
     Indication: HIV INFECTION
     Dosage: 4 TABLETS, QD; ALSO REPORTED AS: DAILY DOSE: 800 MG LPV(LOPINAVIR)/200 MG RTV(RITONAVIR)
     Route: 048
     Dates: start: 20091104
  2. ASPIRIN PROTECT [Concomitant]
     Active Substance: ASPIRIN
     Dosage: 100 MG
  3. TRUVADA [Suspect]
     Active Substance: EMTRICITABINE\TENOFOVIR DISOPROXIL FUMARATE
     Indication: HIV INFECTION
     Dosage: 1 TABLET, QD; ALSO REPORTED AS: DAILY DOSE: 300 MG TDF(TENOFOVIR)/200 MG FTC(EMCITRABINE)
     Route: 048
     Dates: start: 20041115
  4. CELSENTRI [Suspect]
     Active Substance: MARAVIROC
     Indication: HIV INFECTION
     Dosage: 300 MG, QD
     Route: 048
     Dates: start: 20101013
  5. RALTEGRAVIR POTASSIUM [Suspect]
     Active Substance: RALTEGRAVIR POTASSIUM
     Indication: HIV INFECTION
     Dosage: 800 MG, QD
     Route: 048
     Dates: start: 20101013
  6. L-THYROXIN [Concomitant]
     Active Substance: LEVOTHYROXINE SODIUM
     Dosage: 250 MICROGRAM

REACTIONS (3)
  - Hip arthroplasty [Recovering/Resolving]
  - Peripheral arterial occlusive disease [Not Recovered/Not Resolved]
  - Femoral artery occlusion [Recovered/Resolved]

NARRATIVE: CASE EVENT DATE: 20140412
